FAERS Safety Report 14710024 (Version 1)
Quarter: 2018Q2

REPORT INFORMATION
  Report Type: Spontaneous
  Country: ES (occurrence: ES)
  Receive Date: 20180403
  Receipt Date: 20180403
  Transmission Date: 20180711
  Serious: Yes (Life-Threatening, Hospitalization)
  Sender: FDA-Public Use
  Company Number: ES-TEVA-2018-ES-875020

PATIENT
  Age: 32 Year
  Sex: Female

DRUGS (1)
  1. IBUPROFEN (1769A) [Suspect]
     Active Substance: IBUPROFEN
     Indication: NECK PAIN
     Route: 048

REACTIONS (3)
  - Angioedema [Recovered/Resolved]
  - Urticaria [Recovered/Resolved]
  - Anaphylactic shock [Recovered/Resolved]
